FAERS Safety Report 11995220 (Version 1)
Quarter: 2016Q1

REPORT INFORMATION
  Report Type: Spontaneous
  Country: US (occurrence: US)
  Receive Date: 20160203
  Receipt Date: 20160203
  Transmission Date: 20160526
  Serious: No
  Sender: FDA-Public Use
  Company Number: US-UCBSA-2015003895

PATIENT
  Age: 32 Year
  Sex: Female

DRUGS (2)
  1. KEPPRA XR [Suspect]
     Active Substance: LEVETIRACETAM
     Dosage: TITRATION DOSE
     Dates: start: 2014, end: 2014
  2. KEPPRA XR [Suspect]
     Active Substance: LEVETIRACETAM
     Indication: CONVULSION PROPHYLAXIS
     Dosage: 500 MG, ONCE DAILY (QD)
     Dates: start: 2014, end: 2014

REACTIONS (5)
  - Aggression [Recovered/Resolved]
  - Depressed mood [Recovered/Resolved]
  - Depression [Recovered/Resolved]
  - Anger [Recovered/Resolved]
  - Antisocial behaviour [Recovered/Resolved]

NARRATIVE: CASE EVENT DATE: 2014
